FAERS Safety Report 7799466-9 (Version None)
Quarter: 2011Q4

REPORT INFORMATION
  Report Type: 
  Country: None (occurrence: None)
  Receive Date: 20111006
  Receipt Date: 20110926
  Transmission Date: 20120403
  Serious: Yes (Hospitalization, Other)
  Sender: FDA-Public Use
  Company Number: PHEH2008US03268

PATIENT
  Sex: Male

DRUGS (33)
  1. OXYCODONE HCL AND ACETAMINOPHEN [Concomitant]
  2. HEPARIN [Concomitant]
  3. PROSCAR [Concomitant]
  4. ISOSORBIDE MONONITRATE [Concomitant]
     Dosage: 90 MG, BID
  5. VERAPAMIL [Concomitant]
     Dosage: 2 MG, UNK
  6. AREDIA [Suspect]
     Indication: METASTASES TO BONE
     Dosage: 90 MG, QMO
     Dates: start: 20050101
  7. ASPIRIN [Concomitant]
  8. ZETIA [Concomitant]
  9. PLAVIX [Concomitant]
  10. ASPIRIN [Concomitant]
     Dosage: 325 MG, DAILY
  11. MIDAZOLAM HCL [Concomitant]
     Dosage: 2 MG, UNK
     Route: 042
  12. FENTANYL [Concomitant]
  13. SIMVASTATIN [Concomitant]
  14. VERSED [Concomitant]
  15. INTEGRILIN [Concomitant]
  16. CELEBREX [Concomitant]
  17. LOPRESSOR [Concomitant]
  18. RANEXA [Concomitant]
     Dosage: 1000 MG, BID
  19. LIPITOR [Concomitant]
  20. OMEPRAZOLE [Concomitant]
     Dosage: 20 MG, DAILY
  21. OXYCONTIN [Concomitant]
     Dosage: 60 MG, BID
  22. PENICILLIN V POTASSIUM [Concomitant]
     Dosage: 400 MG, QID
  23. CASODEX [Concomitant]
  24. FUROSEMIDE [Concomitant]
     Dosage: 20 MG, DAILY
  25. METOPROLOL TARTRATE [Concomitant]
     Dosage: 100 MG, BID
  26. MULTI-VITAMIN [Concomitant]
  27. SYMBICORT [Concomitant]
  28. NITROGLYCERIN [Concomitant]
  29. ZOMETA [Suspect]
  30. LISINOPRIL [Concomitant]
  31. DILAUDID [Concomitant]
     Dosage: 8 MG, Q4H AS NEEDED
  32. LORAZEPAM [Concomitant]
     Dosage: 05 MG, Q6H AS NEEDED
  33. LOVAZA [Concomitant]

REACTIONS (33)
  - LYMPHOCYTE COUNT DECREASED [None]
  - SPINAL CORD COMPRESSION [None]
  - RENAL FAILURE ACUTE [None]
  - PAIN [None]
  - PULMONARY CONGESTION [None]
  - BUNDLE BRANCH BLOCK RIGHT [None]
  - INTERVERTEBRAL DISC DEGENERATION [None]
  - HYDRONEPHROSIS [None]
  - EMOTIONAL DISTRESS [None]
  - ANAEMIA [None]
  - BLOOD GLUCOSE INCREASED [None]
  - SINUS TACHYCARDIA [None]
  - URETHRAL PAIN [None]
  - HEPATIC STEATOSIS [None]
  - OSTEONECROSIS OF JAW [None]
  - DEFORMITY [None]
  - URINARY TRACT INFECTION [None]
  - PROSTATIC SPECIFIC ANTIGEN INCREASED [None]
  - SUBMANDIBULAR MASS [None]
  - HYPERHIDROSIS [None]
  - NAUSEA [None]
  - VENOUS INSUFFICIENCY [None]
  - OEDEMA PERIPHERAL [None]
  - ASTHENIA [None]
  - ANXIETY [None]
  - NEUTROPHIL COUNT INCREASED [None]
  - DYSPHAGIA [None]
  - ANGINA UNSTABLE [None]
  - FAILURE TO THRIVE [None]
  - INFECTION [None]
  - ARTERIOSCLEROSIS [None]
  - CORONARY ARTERY STENOSIS [None]
  - HYPERPARATHYROIDISM [None]
